FAERS Safety Report 8304292-8 (Version None)
Quarter: 2012Q2

REPORT INFORMATION
  Report Type: 
  Country: None (occurrence: None)
  Receive Date: 20120423
  Receipt Date: 20120423
  Transmission Date: 20120825
  Serious: Yes (Other)
  Sender: FDA-Public Use
  Company Number: None

PATIENT
  Age: 33 Year
  Sex: Male
  Weight: 63.502 kg

DRUGS (5)
  1. LEVOTHYROXINE SODIUM [Concomitant]
  2. SENNAKOT [Concomitant]
     Route: 048
  3. FISH OIL [Concomitant]
     Route: 048
  4. SYNTHROID [Suspect]
     Indication: BLOOD THYROID STIMULATING HORMONE INCREASED
     Dosage: 25MCG-75 MCG
     Route: 048
  5. VITAMIN D [Concomitant]
     Route: 048

REACTIONS (1)
  - CONSTIPATION [None]
